FAERS Safety Report 5779460-X (Version None)
Quarter: 2008Q2

REPORT INFORMATION
  Report Type: 
  Country: None (occurrence: None)
  Receive Date: 20080619
  Receipt Date: 20070824
  Transmission Date: 20081010
  Serious: Yes (Hospitalization, Other)
  Sender: FDA-Public Use
  Company Number: AR-PFIZER INC-2007021608

PATIENT
  Sex: Male
  Weight: 88 kg

DRUGS (2)
  1. SU-011,248 [Suspect]
     Indication: RENAL CANCER
     Route: 048
  2. IBUROFEN [Concomitant]
     Route: 048

REACTIONS (1)
  - PNEUMONIA [None]
